FAERS Safety Report 4324826-8 (Version None)
Quarter: 2004Q1

REPORT INFORMATION
  Report Type: 
  Country: None (occurrence: None)
  Receive Date: 20040323
  Receipt Date: 20040209
  Transmission Date: 20041129
  Serious: No
  Sender: FDA-Public Use
  Company Number: US_0402100672

PATIENT
  Age: 67 Year
  Sex: Male
  Weight: 106 kg

DRUGS (3)
  1. CIALIS [Suspect]
     Indication: ERECTILE DYSFUNCTION
     Dosage: 10 MG
     Dates: start: 20040207
  2. NEXIUM [Concomitant]
  3. HYZAAR [Concomitant]

REACTIONS (1)
  - DRUG INEFFECTIVE [None]
